FAERS Safety Report 13821891 (Version 2)
Quarter: 2017Q3

REPORT INFORMATION
  Report Type: Spontaneous
  Country: US (occurrence: US)
  Receive Date: 20170801
  Receipt Date: 20170912
  Transmission Date: 20171127
  Serious: No
  Sender: FDA-Public Use
  Company Number: US-PFIZER INC-2017328984

PATIENT
  Age: 67 Year
  Sex: Female
  Weight: 147.39 kg

DRUGS (1)
  1. IBRANCE [Suspect]
     Active Substance: PALBOCICLIB
     Indication: BREAST CANCER METASTATIC
     Dosage: 125 MG, CYCLIC (DAY-1-21 EVERY 28 DAYS)
     Route: 048
     Dates: start: 20170714, end: 201709

REACTIONS (4)
  - Blood glucose increased [Unknown]
  - Rash generalised [Unknown]
  - Rash pruritic [Recovering/Resolving]
  - Drug hypersensitivity [Unknown]

NARRATIVE: CASE EVENT DATE: 2017
